FAERS Safety Report 20892014 (Version 1)
Quarter: 2022Q2

REPORT INFORMATION
  Report Type: Spontaneous
  Country: IN (occurrence: IN)
  Receive Date: 20220530
  Receipt Date: 20220530
  Transmission Date: 20220721
  Serious: Yes (Other)
  Sender: FDA-Public Use
  Company Number: IN-PFIZER INC-202101710866

PATIENT
  Age: 38 Year
  Sex: Male

DRUGS (3)
  1. SUTENT [Suspect]
     Active Substance: SUNITINIB MALATE
     Indication: Metastatic renal cell carcinoma
     Dosage: 50 MG, 1X/DAY 4 WEEKS ON, 2 WWEKS OFF
     Route: 048
     Dates: start: 20201030, end: 202104
  2. SUTENT [Suspect]
     Active Substance: SUNITINIB MALATE
     Dosage: 50 MG, 1X/DAY 4 WEEKS ON, 2 WWEKS OFF
     Route: 048
  3. SUTENT [Suspect]
     Active Substance: SUNITINIB MALATE
     Dosage: 50 MG, CYCLIC(1-0-0, 4 WEEKS ON/2 WEEKS OFF FOR 3 MONTHS)
     Route: 048

REACTIONS (4)
  - Epidermolysis [Recovered/Resolved]
  - Palmar-plantar erythrodysaesthesia syndrome [Recovered/Resolved]
  - Erythema [Unknown]
  - Gastrointestinal disorder [Recovered/Resolved]
